FAERS Safety Report 19166668 (Version 1)
Quarter: 2021Q2

REPORT INFORMATION
  Report Type: Spontaneous
  Country: DE (occurrence: DE)
  Receive Date: 20210422
  Receipt Date: 20210422
  Transmission Date: 20210717
  Serious: Yes (Other)
  Sender: FDA-Public Use
  Company Number: DE-TEVA-2021-DE-1902408

PATIENT
  Age: 55 Year
  Sex: Female

DRUGS (1)
  1. IBANDRONATE [Suspect]
     Active Substance: IBANDRONATE SODIUM
     Indication: BONE MARROW OEDEMA
     Dosage: TWICE
     Route: 042

REACTIONS (1)
  - Bone marrow oedema [Recovered/Resolved]
